FAERS Safety Report 24415648 (Version 2)
Quarter: 2024Q4

REPORT INFORMATION
  Report Type: Report from Study
  Country: BR (occurrence: BR)
  Receive Date: 20241009
  Receipt Date: 20241023
  Transmission Date: 20250114
  Serious: Yes (Hospitalization)
  Sender: JOHNSON AND JOHNSON
  Company Number: BR-JNJFOC-20241010481

PATIENT
  Age: 15 Year
  Sex: Male
  Weight: 55 kg

DRUGS (2)
  1. INFLIXIMAB [Suspect]
     Active Substance: INFLIXIMAB
     Indication: Crohn^s disease
     Dosage: 5 VIALS
     Route: 041
     Dates: start: 202311
  2. INFLIXIMAB [Suspect]
     Active Substance: INFLIXIMAB
     Route: 041

REACTIONS (5)
  - Crohn^s disease [Recovering/Resolving]
  - Hypotension [Recovering/Resolving]
  - Therapeutic response decreased [Unknown]
  - Off label use [Unknown]
  - Product dose omission issue [Unknown]

NARRATIVE: CASE EVENT DATE: 20240701
